FAERS Safety Report 10172538 (Version 1)
Quarter: 2014Q2

REPORT INFORMATION
  Report Type: Spontaneous
  Country: CN (occurrence: CN)
  Receive Date: 20140515
  Receipt Date: 20140515
  Transmission Date: 20141212
  Serious: Yes (Life-Threatening, Hospitalization)
  Sender: FDA-Public Use
  Company Number: CN-ASTRAZENECA-2014SE32101

PATIENT
  Age: 31057 Day
  Sex: Male
  Weight: 65 kg

DRUGS (1)
  1. BUDESONIDE [Suspect]
     Indication: WHEEZING
     Route: 055
     Dates: start: 20130117, end: 20130117

REACTIONS (3)
  - Infection [Unknown]
  - Productive cough [Unknown]
  - Anaphylactic shock [Recovering/Resolving]
